FAERS Safety Report 5039863-8 (Version None)
Quarter: 2006Q2

REPORT INFORMATION
  Report Type: 
  Country: None (occurrence: None)
  Receive Date: 20060601
  Receipt Date: 20060110
  Transmission Date: 20061013
  Serious: No
  Sender: FDA-Public Use
  Company Number: 2006PV006884

PATIENT
  Age: 64 Year
  Sex: Female
  Weight: 102.0593 kg

DRUGS (5)
  1. BYETTA [Suspect]
     Indication: DIABETES MELLITUS NON-INSULIN-DEPENDENT
     Dosage: SEE IMAGE
     Route: 058
     Dates: start: 20050923, end: 20051024
  2. BYETTA [Suspect]
     Indication: DIABETES MELLITUS NON-INSULIN-DEPENDENT
     Dosage: SEE IMAGE
     Route: 058
     Dates: start: 20051025, end: 20051030
  3. LANTUS [Concomitant]
  4. ACTOS [Concomitant]
  5. PREVACID [Concomitant]

REACTIONS (3)
  - GASTROOESOPHAGEAL REFLUX DISEASE [None]
  - NAUSEA [None]
  - WEIGHT DECREASED [None]
